FAERS Safety Report 12121898 (Version 1)
Quarter: 2016Q1

REPORT INFORMATION
  Report Type: Spontaneous
  Country: US (occurrence: US)
  Receive Date: 20160226
  Receipt Date: 20160226
  Transmission Date: 20160526
  Serious: No
  Sender: FDA-Public Use
  Company Number: US-ALLERGAN-1513718US

PATIENT
  Age: 64 Year
  Sex: Female
  Weight: 49.89 kg

DRUGS (2)
  1. SYNTHROID [Concomitant]
     Active Substance: LEVOTHYROXINE SODIUM
     Indication: HYPOTHYROIDISM
     Dosage: 75 ?G, UNK
     Route: 048
  2. REFRESH OPTIVE [Suspect]
     Active Substance: CARBOXYMETHYLCELLULOSE SODIUM\GLYCERIN
     Indication: DRY EYE
     Dosage: 1-2 DROPS, TID
     Route: 047
     Dates: start: 20150703, end: 20150716

REACTIONS (2)
  - Dry eye [Recovered/Resolved]
  - Eyelid skin dryness [Recovered/Resolved]

NARRATIVE: CASE EVENT DATE: 20150703
